FAERS Safety Report 6159054-7 (Version None)
Quarter: 2009Q2

REPORT INFORMATION
  Report Type: 
  Country: None (occurrence: None)
  Receive Date: 20090417
  Receipt Date: 20090408
  Transmission Date: 20091009
  Serious: Yes (Death)
  Sender: FDA-Public Use
  Company Number: US-PFIZER INC-2009196058

PATIENT
  Sex: Male

DRUGS (1)
  1. CEREBYX [Suspect]

REACTIONS (1)
  - INCORRECT DOSE ADMINISTERED [None]
